FAERS Safety Report 8538741-7 (Version None)
Quarter: 2012Q3

REPORT INFORMATION
  Report Type: 
  Country: None (occurrence: None)
  Receive Date: 20120716
  Receipt Date: 20111223
  Transmission Date: 20120928
  Serious: Yes (Other)
  Sender: FDA-Public Use
  Company Number: C11-010

PATIENT
  Age: 42 Year
  Sex: Male

DRUGS (2)
  1. RIFAMPICIN [Suspect]
     Indication: PARONYCHIA
  2. RIFAMPICIN [Suspect]
     Indication: SKIN INFECTION

REACTIONS (4)
  - BLISTER [None]
  - PEMPHIGUS [None]
  - PRURITUS [None]
  - PARONYCHIA [None]
